FAERS Safety Report 4290518-7 (Version None)
Quarter: 2004Q1

REPORT INFORMATION
  Report Type: 
  Country: None (occurrence: None)
  Receive Date: 20040209
  Receipt Date: 20040122
  Transmission Date: 20041129
  Serious: Yes (Hospitalization)
  Sender: FDA-Public Use
  Company Number: 189177

PATIENT
  Age: 56 Year
  Sex: Female

DRUGS (5)
  1. AVONEX [Suspect]
     Indication: MULTIPLE SCLEROSIS
     Dosage: 30 MCG QW IM
     Dates: start: 20020205
  2. DITROPAN [Concomitant]
  3. DILANTIN [Concomitant]
  4. LEVOXYL [Concomitant]
  5. PROTONIX [Concomitant]

REACTIONS (1)
  - MYOCARDIAL INFARCTION [None]
